FAERS Safety Report 23695782 (Version 1)
Quarter: 2024Q2

REPORT INFORMATION
  Report Type: Spontaneous
  Country: BE (occurrence: BE)
  Receive Date: 20240402
  Receipt Date: 20240402
  Transmission Date: 20240716
  Serious: Yes (Death, Life-Threatening, Hospitalization)
  Sender: FDA-Public Use
  Company Number: BE-MACLEODS PHARMACEUTICALS US LTD-MAC2024046657

PATIENT

DRUGS (2)
  1. VENLAFAXINE HYDROCHLORIDE [Suspect]
     Active Substance: VENLAFAXINE HYDROCHLORIDE
     Indication: Depression
     Dosage: 4200 MILLIGRAM, SINGLE
     Route: 065
  2. ALCOHOL [Concomitant]
     Active Substance: ALCOHOL
     Indication: Product used for unknown indication
     Dosage: UNK
     Route: 065

REACTIONS (15)
  - Hypoxia [Fatal]
  - Cardiac failure acute [Recovering/Resolving]
  - Acute kidney injury [Unknown]
  - Acute respiratory distress syndrome [Unknown]
  - Liver injury [Unknown]
  - Cell death [Unknown]
  - Atrial fibrillation [Recovering/Resolving]
  - Clonus [Unknown]
  - Pneumonia [Unknown]
  - Pneumococcal sepsis [Unknown]
  - Serotonin syndrome [Unknown]
  - Rhabdomyolysis [Unknown]
  - Hypotension [Recovering/Resolving]
  - Ventricular tachycardia [Recovering/Resolving]
  - Intentional overdose [Unknown]
